FAERS Safety Report 20909070 (Version 1)
Quarter: 2022Q2

REPORT INFORMATION
  Report Type: Report from Study
  Country: GB (occurrence: GB)
  Receive Date: 20220603
  Receipt Date: 20220603
  Transmission Date: 20220721
  Serious: Yes (Hospitalization)
  Sender: FDA-Public Use
  Company Number: GB-BRISTOL-MYERS SQUIBB COMPANY-2022-049374

PATIENT
  Age: 75 Year
  Sex: Male
  Weight: 120 kg

DRUGS (19)
  1. NIVOLUMAB [Suspect]
     Active Substance: NIVOLUMAB
     Indication: Hepatocellular carcinoma
     Route: 042
     Dates: start: 20210203
  2. DOXORUBICIN [Suspect]
     Active Substance: DOXORUBICIN
     Indication: Hepatocellular carcinoma
     Dosage: ROUTE : TRANSATERIAL
     Route: 065
     Dates: start: 20210219, end: 20210219
  3. RAMIPRIL [Suspect]
     Active Substance: RAMIPRIL
     Indication: Myocardial ischaemia
     Dosage: TREATMENT OVERDOSE
     Route: 048
     Dates: start: 2012
  4. FERROUS FUMARATE [Suspect]
     Active Substance: FERROUS FUMARATE
     Indication: Iron deficiency anaemia
     Dosage: TREATMENT OVERDOSE -NO
     Route: 048
     Dates: start: 2012
  5. ATORVASTATIN [Suspect]
     Active Substance: ATORVASTATIN
     Indication: Hypercholesterolaemia
     Dosage: TREATMENT OVERDOSE
     Route: 048
     Dates: start: 2016
  6. TRAMADOL [Suspect]
     Active Substance: TRAMADOL
     Indication: Pain
     Dosage: TREATMENT OVERDOSE -NO
     Route: 048
     Dates: start: 20210223
  7. COCODAMOL [Suspect]
     Active Substance: ACETAMINOPHEN\CODEINE PHOSPHATE
     Indication: Pain
     Dosage: 15/500MG-TREATMENT OVERDOSE : NO
     Route: 048
     Dates: start: 20210308
  8. FUROSEMIDE [Suspect]
     Active Substance: FUROSEMIDE
     Indication: Oedema
     Route: 048
     Dates: start: 20210702
  9. DIGOXIN [Suspect]
     Active Substance: DIGOXIN
     Indication: Atrial fibrillation
     Dosage: TREATMENT OVERDOSE : NO
     Route: 048
     Dates: start: 20211116
  10. SITAGLIPTIN [Concomitant]
     Active Substance: SITAGLIPTIN
     Indication: Type 2 diabetes mellitus
     Dosage: TREATMENT OVERDOSE
     Route: 048
     Dates: start: 2012
  11. LANSOPRAZOLE [Concomitant]
     Active Substance: LANSOPRAZOLE
     Indication: Prophylaxis
     Dosage: TREATMENT OVERDOSE
     Route: 048
  12. NITROGLYCERIN [Concomitant]
     Active Substance: NITROGLYCERIN
     Indication: Angina pectoris
     Dosage: 800 MCG-PRN
     Route: 048
     Dates: start: 2012
  13. AMITRIPTYLINE [Concomitant]
     Active Substance: AMITRIPTYLINE
     Indication: Depression
     Dosage: TREATMENT OVERDOSE
     Route: 048
     Dates: start: 2012
  14. ISOSORBIDE MONONITRATE [Concomitant]
     Active Substance: ISOSORBIDE MONONITRATE
     Indication: Myocardial ischaemia
     Dosage: TREATMENT OVERDOSE
     Route: 048
     Dates: start: 2016
  15. MINERAL OIL\PARAFFIN [Concomitant]
     Active Substance: MINERAL OIL\PARAFFIN
     Indication: Product used for unknown indication
     Dosage: PRN
     Route: 061
  16. ONDANSETRON [Concomitant]
     Active Substance: ONDANSETRON
     Indication: Nausea
     Dosage: PRN
     Route: 048
     Dates: start: 20210219
  17. METFORMIN [Concomitant]
     Active Substance: METFORMIN HYDROCHLORIDE
     Indication: Type 2 diabetes mellitus
     Route: 048
     Dates: start: 20210222
  18. CARVEDIOLOL [Concomitant]
     Indication: Hypertension
     Route: 048
     Dates: start: 20211026
  19. ENOXAPARIN [Concomitant]
     Active Substance: ENOXAPARIN
     Indication: Portal vein thrombosis
     Dosage: TREATMENT OVERDOSE NO
     Route: 058
     Dates: start: 20210314

REACTIONS (1)
  - General physical health deterioration [Not Recovered/Not Resolved]

NARRATIVE: CASE EVENT DATE: 20220519
